FAERS Safety Report 14812981 (Version 1)
Quarter: 2018Q2

REPORT INFORMATION
  Report Type: Spontaneous
  Country: FR (occurrence: FR)
  Receive Date: 20180426
  Receipt Date: 20180426
  Transmission Date: 20180711
  Serious: Yes (Hospitalization)
  Sender: FDA-Public Use
  Company Number: FR-MERCK KGAA-2046540

PATIENT
  Age: 54 Year
  Sex: Female

DRUGS (1)
  1. NOVOTHYROX [Suspect]
     Active Substance: LEVOTHYROXINE SODIUM
     Indication: AUTOIMMUNE THYROIDITIS

REACTIONS (24)
  - Amnesia [None]
  - Sleep disorder [None]
  - Blood thyroid stimulating hormone decreased [None]
  - Neurological symptom [None]
  - Pain in extremity [None]
  - Disturbance in attention [None]
  - Asthenopia [None]
  - Irritability [None]
  - Arthralgia [None]
  - Aggression [None]
  - Alopecia [None]
  - Malaise [None]
  - Back pain [None]
  - Rotator cuff syndrome [None]
  - Social avoidant behaviour [None]
  - Palpitations [None]
  - Fatigue [None]
  - Dizziness [None]
  - Dyspnoea [None]
  - Pain [None]
  - Depression [None]
  - Asthenia [None]
  - Chills [None]
  - Dyspnoea exertional [None]

NARRATIVE: CASE EVENT DATE: 20170907
